FAERS Safety Report 7584163-5 (Version None)
Quarter: 2011Q2

REPORT INFORMATION
  Report Type: 
  Country: None (occurrence: None)
  Receive Date: 20110630
  Receipt Date: 20110627
  Transmission Date: 20111010
  Serious: Yes (Other)
  Sender: FDA-Public Use
  Company Number: US-PFIZER INC-2011113244

PATIENT
  Sex: Female
  Weight: 73.5 kg

DRUGS (10)
  1. RANITIDINE [Concomitant]
     Indication: GASTRIC DISORDER
     Dosage: UNSPECIFIED DOSE, AS NEEDED
     Route: 048
  2. SYNTHROID [Concomitant]
     Indication: THYROID DISORDER
     Dosage: 112 UG, DAILY
     Route: 048
  3. AMLODIPINE BESYLATE [Suspect]
     Dosage: 5 MG, DAILY
     Route: 048
  4. PREDNISONE [Concomitant]
     Indication: RASH
  5. LISINOPRIL [Suspect]
     Indication: HYPERTENSION
     Dosage: 10 MG, 2X/DAY
  6. PLAVIX [Suspect]
     Indication: HYPERTENSION
  7. AMIODARONE HCL [Suspect]
     Indication: ATRIAL FIBRILLATION
     Dosage: 200 MG, DAILY
     Route: 048
     Dates: start: 20110101
  8. PLAVIX [Suspect]
     Indication: ATRIAL FIBRILLATION
     Dosage: 75 MG, 1X/DAY
     Route: 048
     Dates: start: 20100101
  9. PERCOCET [Concomitant]
     Indication: PAIN
     Dosage: UNSPECIFIED DOSE, AS NEEDED
     Route: 048
  10. PREDNISONE [Concomitant]
     Indication: POLYMYALGIA RHEUMATICA
     Dosage: 5 MG, AS NEEDED
     Route: 048
     Dates: start: 20080101

REACTIONS (4)
  - HYPERHIDROSIS [None]
  - FEELING HOT [None]
  - MALAISE [None]
  - MENTAL IMPAIRMENT [None]
